FAERS Safety Report 10334147 (Version 1)
Quarter: 2014Q3

REPORT INFORMATION
  Report Type: Spontaneous
  Country: US (occurrence: None)
  Receive Date: 20140721
  Receipt Date: 20140721
  Transmission Date: 20150326
  Serious: Yes (Life-Threatening, Hospitalization)
  Sender: FDA-Public Use
  Company Number: None

PATIENT
  Age: 70 Year
  Sex: Female
  Weight: 108.86 kg

DRUGS (1)
  1. CRESTOR [Suspect]
     Active Substance: ROSUVASTATIN CALCIUM
     Indication: BLOOD CHOLESTEROL
     Dosage: 1 PILL  ONCE DAILY
     Dates: start: 20120930, end: 20140630

REACTIONS (11)
  - Rhabdomyolysis [None]
  - Fall [None]
  - Weight increased [None]
  - Faecal incontinence [None]
  - Urinary incontinence [None]
  - Myopathy [None]
  - Confusional state [None]
  - Blood glucose increased [None]
  - Swelling face [None]
  - Urinary tract infection [None]
  - Paralysis [None]

NARRATIVE: CASE EVENT DATE: 20140715
